FAERS Safety Report 15353383 (Version 6)
Quarter: 2020Q2

REPORT INFORMATION
  Report Type: Report from Study
  Country: CA (occurrence: CA)
  Receive Date: 20180905
  Receipt Date: 20200525
  Transmission Date: 20200713
  Serious: Yes (Hospitalization)
  Sender: FDA-Public Use
  Company Number: CA-APOPHARMA-2018AP020031

PATIENT
  Age: 85 Year
  Sex: Male

DRUGS (4)
  1. FERRIPROX [Suspect]
     Active Substance: DEFERIPRONE
     Dosage: 5000 MG, QD
     Route: 048
     Dates: start: 20190216, end: 2019
  2. FERRIPROX [Suspect]
     Active Substance: DEFERIPRONE
     Dosage: 500 MG, QD
     Route: 048
     Dates: start: 20190531
  3. FERRIPROX [Suspect]
     Active Substance: DEFERIPRONE
     Dosage: 2000 MG, BID
     Route: 048
     Dates: start: 2020
  4. FERRIPROX [Suspect]
     Active Substance: DEFERIPRONE
     Indication: MYELODYSPLASTIC SYNDROME
     Dosage: 5000 MG, QD
     Route: 048
     Dates: start: 20180625, end: 20180824

REACTIONS (2)
  - Dizziness [Recovering/Resolving]
  - Malaise [Unknown]

NARRATIVE: CASE EVENT DATE: 20180824
